FAERS Safety Report 6511753-0 (Version None)
Quarter: 2009Q4

REPORT INFORMATION
  Report Type: 
  Country: None (occurrence: None)
  Receive Date: 20091222
  Receipt Date: 20090402
  Transmission Date: 20100525
  Serious: No
  Sender: FDA-Public Use
  Company Number: US-ASTRAZENECA-2009UW08381

PATIENT
  Age: 79 Year
  Sex: Female
  Weight: 76.7 kg

DRUGS (6)
  1. CRESTOR [Suspect]
     Indication: BLOOD CHOLESTEROL INCREASED
     Route: 048
  2. WELLBUTRIN [Concomitant]
  3. LEXAPRO [Concomitant]
  4. COZAAR [Concomitant]
  5. AMITRIPTYLINE [Concomitant]
  6. HYDROCODONE [Concomitant]

REACTIONS (3)
  - DRY MOUTH [None]
  - LIP DRY [None]
  - THROAT IRRITATION [None]
